FAERS Safety Report 5227205-4 (Version None)
Quarter: 2007Q1

REPORT INFORMATION
  Report Type: 
  Country: None (occurrence: None)
  Receive Date: 20070202
  Receipt Date: 20070123
  Transmission Date: 20070707
  Serious: Yes (Hospitalization, Other)
  Sender: FDA-Public Use
  Company Number: BE-GLAXOSMITHKLINE-B0442021A

PATIENT
  Age: 58 Year
  Sex: Female

DRUGS (7)
  1. LAMOTRIGINE [Suspect]
     Indication: BIPOLAR DISORDER
     Route: 048
     Dates: start: 20060727, end: 20061107
  2. DEPAKENE [Concomitant]
     Indication: BIPOLAR DISORDER
     Route: 048
     Dates: start: 20060411
  3. AKINETON [Concomitant]
     Dosage: 2MG TWICE PER DAY
     Route: 048
     Dates: start: 20060411
  4. MIRTAZAPINE [Concomitant]
     Dosage: 15MG THREE TIMES PER DAY
     Route: 048
     Dates: start: 20061017
  5. SEROQUEL [Concomitant]
     Dosage: 100MG PER DAY
     Route: 048
     Dates: start: 20060803
  6. OMEPRAZOLE [Concomitant]
     Dosage: 10MG PER DAY
     Route: 048
     Dates: start: 20060912
  7. TEMESTA [Concomitant]
     Dosage: 1MG TWICE PER DAY
     Route: 048
     Dates: start: 20060907

REACTIONS (6)
  - COORDINATION ABNORMAL [None]
  - DISORIENTATION [None]
  - DRUG TOXICITY [None]
  - GAIT DISTURBANCE [None]
  - NYSTAGMUS [None]
  - TREMOR [None]
